FAERS Safety Report 24672645 (Version 4)
Quarter: 2024Q4

REPORT INFORMATION
  Report Type: Spontaneous
  Country: US (occurrence: US)
  Receive Date: 20241127
  Receipt Date: 20241230
  Transmission Date: 20250115
  Serious: Yes (Death, Other)
  Sender: SANOFI AVENTIS
  Company Number: US-SA-2024SA335303

PATIENT
  Age: 81 Year
  Sex: Male

DRUGS (2)
  1. DUPIXENT [Suspect]
     Active Substance: DUPILUMAB
     Indication: Neurodermatitis
     Dosage: UNK, 1X
     Route: 058
     Dates: start: 202405, end: 202405
  2. DUPIXENT [Suspect]
     Active Substance: DUPILUMAB
     Indication: Eczema
     Dosage: 300 MG, QOW
     Route: 058
     Dates: start: 202406

REACTIONS (2)
  - Death [Fatal]
  - Neurodermatitis [Recovered/Resolved]

NARRATIVE: CASE EVENT DATE: 20240101
